FAERS Safety Report 5846157-7 (Version None)
Quarter: 2008Q3

REPORT INFORMATION
  Report Type: 
  Country: None (occurrence: None)
  Receive Date: 20080813
  Receipt Date: 20080805
  Transmission Date: 20090109
  Serious: Yes (Hospitalization)
  Sender: FDA-Public Use
  Company Number: 2008AL008164

PATIENT
  Age: 74 Year
  Sex: Male

DRUGS (1)
  1. DIGOXIN [Suspect]
     Indication: CARDIAC DISORDER
     Dosage: 0.25MG, DAILY, PO
     Route: 048

REACTIONS (4)
  - DIZZINESS [None]
  - LOSS OF CONSCIOUSNESS [None]
  - PHOTOPHOBIA [None]
  - THERAPEUTIC AGENT TOXICITY [None]
